FAERS Safety Report 7048378-7 (Version None)
Quarter: 2010Q4

REPORT INFORMATION
  Report Type: 
  Country: None (occurrence: None)
  Receive Date: 20101015
  Receipt Date: 20101006
  Transmission Date: 20110411
  Serious: Yes (Other)
  Sender: FDA-Public Use
  Company Number: GB-ABBOTT-10P-167-0676864-00

PATIENT
  Age: 45 Year
  Sex: Male

DRUGS (1)
  1. ERYTHROCIN ES 500 MG TABLETS [Suspect]
     Indication: PRODUCT USED FOR UNKNOWN INDICATION
     Route: 048
     Dates: start: 20100930

REACTIONS (1)
  - DYSPNOEA [None]
